FAERS Safety Report 9800445 (Version 5)
Quarter: 2014Q1

REPORT INFORMATION
  Report Type: Report from Study
  Country: CA (occurrence: CA)
  Receive Date: 20140107
  Receipt Date: 20140224
  Transmission Date: 20141002
  Serious: Yes (Death, Other)
  Sender: FDA-Public Use
  Company Number: CA-ROCHE-1328703

PATIENT
  Sex: Female
  Weight: 49.9 kg

DRUGS (4)
  1. HERCEPTIN [Suspect]
     Indication: BREAST CANCER
     Route: 065
     Dates: start: 20120901, end: 20131001
  2. KADCYLA [Suspect]
     Indication: HER-2 POSITIVE BREAST CANCER
     Route: 042
     Dates: start: 20140107, end: 20140107
  3. TAXOTERE [Suspect]
     Indication: BREAST CANCER
     Route: 065
     Dates: start: 201209, end: 201211
  4. TAMOXIFEN [Suspect]
     Indication: BREAST CANCER
     Route: 065
     Dates: start: 201309, end: 201311

REACTIONS (7)
  - Malignant neoplasm progression [Fatal]
  - Mobility decreased [Not Recovered/Not Resolved]
  - Drug ineffective [Unknown]
  - Pain [Unknown]
  - Muscle spasms [Unknown]
  - Hyperchlorhydria [Unknown]
  - Pharyngitis streptococcal [Unknown]
